FAERS Safety Report 19146662 (Version 4)
Quarter: 2021Q3

REPORT INFORMATION
  Report Type: Report from Study
  Country: US (occurrence: US)
  Receive Date: 20210416
  Receipt Date: 20210812
  Transmission Date: 20211014
  Serious: Yes (Hospitalization)
  Sender: FDA-Public Use
  Company Number: US-JNJFOC-20210422224

PATIENT
  Age: 12 Year
  Sex: Male
  Weight: 37.3 kg

DRUGS (8)
  1. UPTRAVI [Suspect]
     Active Substance: SELEXIPAG
     Indication: PULMONARY HYPERTENSION
     Route: 048
     Dates: start: 202003, end: 20210405
  2. OXYGEN. [Concomitant]
     Active Substance: OXYGEN
  3. REMODULIN [Suspect]
     Active Substance: TREPROSTINIL
     Indication: PULMONARY HYPERTENSION
     Route: 058
     Dates: start: 20210406
  4. REMODULIN [Suspect]
     Active Substance: TREPROSTINIL
     Indication: PULMONARY HYPERTENSION
     Route: 058
  5. ADVAIR HFA [Concomitant]
     Active Substance: FLUTICASONE PROPIONATE\SALMETEROL XINAFOATE
     Indication: CHRONIC RESPIRATORY DISEASE
     Dosage: 115?21 MCG/PUFF/2 PUFFS
  6. UPTRAVI [Suspect]
     Active Substance: SELEXIPAG
     Indication: PULMONARY HYPERTENSION
  7. REMODULIN [Suspect]
     Active Substance: TREPROSTINIL
     Route: 058
  8. ADCIRCA [Concomitant]
     Active Substance: TADALAFIL
     Indication: PULMONARY ARTERIAL HYPERTENSION
     Route: 065
     Dates: start: 201609

REACTIONS (7)
  - Pulmonary hypertension [Unknown]
  - Right ventricular failure [Unknown]
  - Off label use [Unknown]
  - Catheter site pain [Unknown]
  - Product use issue [Unknown]
  - Headache [Unknown]
  - Catheter site erythema [Unknown]

NARRATIVE: CASE EVENT DATE: 20210406
